FAERS Safety Report 5488836-X (Version None)
Quarter: 2007Q4

REPORT INFORMATION
  Report Type: 
  Country: None (occurrence: None)
  Receive Date: 20071016
  Receipt Date: 20071005
  Transmission Date: 20080405
  Serious: Yes (Other)
  Sender: FDA-Public Use
  Company Number: 2007-03347

PATIENT
  Sex: Female

DRUGS (2)
  1. VELCADE(BROTEZOMIB) INJECTION [Suspect]
     Indication: DRUG USE FOR UNKNOWN INDICATION
  2. DEXAMETHASONE 0.5MG TAB [Concomitant]

REACTIONS (2)
  - DRUG INEFFECTIVE [None]
  - THROMBOCYTOPENIA [None]
